FAERS Safety Report 10916250 (Version 1)
Quarter: 2015Q1

REPORT INFORMATION
  Report Type: Spontaneous
  Country: US (occurrence: US)
  Receive Date: 20150316
  Receipt Date: 20150316
  Transmission Date: 20150721
  Serious: Yes (Hospitalization, Other)
  Sender: FDA-Public Use
  Company Number: US-ABBVIE-15P-163-1358715-00

PATIENT
  Sex: Male

DRUGS (3)
  1. TESTIM [Suspect]
     Active Substance: TESTOSTERONE
     Indication: BLOOD TESTOSTERONE DECREASED
     Dosage: UNKNOWN DOSING AND FREQUENCY
     Route: 061
  2. ANDROGEL [Suspect]
     Active Substance: TESTOSTERONE
     Indication: BLOOD TESTOSTERONE DECREASED
     Dosage: UNKNOWN DOSING AND FREQUENCY
     Route: 061
  3. AXIRON [Suspect]
     Active Substance: TESTOSTERONE
     Indication: BLOOD TESTOSTERONE DECREASED
     Dosage: UNKNOWN DOSING AND FREQUENCY
     Route: 061

REACTIONS (5)
  - Pain [Unknown]
  - Emotional disorder [Unknown]
  - Cerebrovascular accident [Unknown]
  - Injury [Unknown]
  - Economic problem [Unknown]

NARRATIVE: CASE EVENT DATE: 201203
